FAERS Safety Report 5311308-X (Version None)
Quarter: 2007Q2

REPORT INFORMATION
  Report Type: 
  Country: None (occurrence: None)
  Receive Date: 20070430
  Receipt Date: 20070418
  Transmission Date: 20071010
  Serious: Yes (Other)
  Sender: FDA-Public Use
  Company Number: FR-BAYER-200710153BFR

PATIENT
  Age: 8 Year
  Sex: Male

DRUGS (2)
  1. ADALATE LP [Suspect]
     Indication: UNEVALUABLE EVENT
     Route: 048
     Dates: start: 20040101
  2. UNKNOWN [Concomitant]
     Indication: PROPHYLAXIS AGAINST TRANSPLANT REJECTION

REACTIONS (1)
  - PERSONALITY DISORDER OF CHILDHOOD [None]
